FAERS Safety Report 20353191 (Version 1)
Quarter: 2022Q1

REPORT INFORMATION
  Report Type: Report from Study
  Country: US (occurrence: US)
  Receive Date: 20220119
  Receipt Date: 20220119
  Transmission Date: 20220423
  Serious: Yes (Other)
  Sender: FDA-Public Use
  Company Number: US-MYLANLABS-2021M1094472

PATIENT
  Sex: Female
  Weight: 91.99 kg

DRUGS (1)
  1. GLATIRAMER ACETATE [Suspect]
     Active Substance: GLATIRAMER ACETATE
     Indication: Multiple sclerosis
     Dosage: 40 MILLIGRAM PER MILLILITRE, 3XW
     Route: 058

REACTIONS (15)
  - Neuropathy peripheral [Unknown]
  - Gastroenteritis Escherichia coli [Unknown]
  - Diverticulitis [Unknown]
  - Incorrect dose administered [Unknown]
  - Muscle spasms [Unknown]
  - Fall [Unknown]
  - Teeth brittle [Unknown]
  - Wrong device used [Unknown]
  - White matter lesion [Unknown]
  - Abdominal neoplasm [Unknown]
  - Swelling [Unknown]
  - Injection site mass [Unknown]
  - Malaise [Unknown]
  - Chest pain [Unknown]
  - Chest discomfort [Unknown]
